FAERS Safety Report 4798431-3 (Version None)
Quarter: 2005Q4

REPORT INFORMATION
  Report Type: 
  Country: None (occurrence: None)
  Receive Date: 20051014
  Receipt Date: 20051011
  Transmission Date: 20060501
  Serious: Yes (Other)
  Sender: FDA-Public Use
  Company Number: DE-MERCK-0510DEU00048

PATIENT
  Age: 69 Year
  Sex: Male

DRUGS (3)
  1. COZAAR [Suspect]
     Indication: HYPERTENSION
     Route: 048
     Dates: start: 20030201, end: 20040501
  2. COZAAR [Suspect]
     Route: 048
     Dates: start: 20040501, end: 20050101
  3. COZAAR [Suspect]
     Route: 048
     Dates: start: 20050101, end: 20050830

REACTIONS (4)
  - ANGIONEUROTIC OEDEMA [None]
  - COUGH [None]
  - LARYNGEAL OEDEMA [None]
  - OBSTRUCTIVE AIRWAYS DISORDER [None]
